FAERS Safety Report 22607894 (Version 1)
Quarter: 2023Q2

REPORT INFORMATION
  Report Type: Spontaneous
  Country: US (occurrence: US)
  Receive Date: 20230616
  Receipt Date: 20230616
  Transmission Date: 20230722
  Serious: No
  Sender: FDA-Public Use
  Company Number: US-CIPLA LTD.-2022US04345

PATIENT

DRUGS (2)
  1. WARFARIN [Suspect]
     Active Substance: WARFARIN
     Indication: Thrombosis prophylaxis
     Dosage: 3 MILLIGRAM, QD
     Route: 048
     Dates: start: 20220617
  2. ASPIRIN [Concomitant]
     Active Substance: ASPIRIN
     Indication: Product used for unknown indication
     Dosage: UNK
     Route: 065

REACTIONS (1)
  - Decreased appetite [Unknown]

NARRATIVE: CASE EVENT DATE: 20220630
